FAERS Safety Report 4656043-6 (Version None)
Quarter: 2005Q2

REPORT INFORMATION
  Report Type: 
  Country: None (occurrence: None)
  Receive Date: 20050506
  Receipt Date: 20050424
  Transmission Date: 20051028
  Serious: Yes (Other)
  Sender: FDA-Public Use
  Company Number: 2005063923

PATIENT
  Age: 18 Year
  Sex: Male
  Weight: 79.3795 kg

DRUGS (1)
  1. DRAMAMINE [Suspect]
     Dosage: 18 TABLETS ONCE, ORAL
     Route: 048
     Dates: start: 20050423, end: 20050423

REACTIONS (3)
  - OVERDOSE [None]
  - SOMNOLENCE [None]
  - VOMITING [None]
